FAERS Safety Report 6120693-0 (Version None)
Quarter: 2009Q1

REPORT INFORMATION
  Report Type: 
  Country: None (occurrence: None)
  Receive Date: 20090317
  Receipt Date: 20090306
  Transmission Date: 20090719
  Serious: Yes (Other)
  Sender: FDA-Public Use
  Company Number: BR-ROCHE-614673

PATIENT
  Sex: Female

DRUGS (1)
  1. ROACUTAN [Suspect]
     Indication: ACNE
     Route: 048
     Dates: start: 20090201

REACTIONS (6)
  - ACNE [None]
  - CHAPPED LIPS [None]
  - CHOLELITHIASIS [None]
  - SLEEP DISORDER [None]
  - VISION BLURRED [None]
  - WOUND [None]
